FAERS Safety Report 5849474-X (Version None)
Quarter: 2008Q3

REPORT INFORMATION
  Report Type: 
  Country: None (occurrence: None)
  Receive Date: 20080819
  Receipt Date: 20080708
  Transmission Date: 20090109
  Serious: No
  Sender: FDA-Public Use
  Company Number: US-JNJFOC-20080702617

PATIENT
  Age: 16 Year
  Sex: Male
  Weight: 90.72 kg

DRUGS (2)
  1. INVEGA [Suspect]
     Indication: OPPOSITIONAL DEFIANT DISORDER
     Route: 048
  2. INVEGA [Suspect]
     Indication: ATTENTION DEFICIT/HYPERACTIVITY DISORDER
     Route: 048

REACTIONS (1)
  - WEIGHT INCREASED [None]
